FAERS Safety Report 8942726 (Version 3)
Quarter: 2014Q1

REPORT INFORMATION
  Report Type: Spontaneous
  Country: US (occurrence: US)
  Receive Date: 20121204
  Receipt Date: 20140321
  Transmission Date: 20141002
  Serious: Yes (Hospitalization)
  Sender: FDA-Public Use
  Company Number: US-BAYER-2012-126341

PATIENT
  Age: 15 Year
  Sex: Female
  Weight: 52.15 kg

DRUGS (9)
  1. YAZ [Suspect]
     Dosage: UNK
     Dates: start: 20100606, end: 201011
  2. ZOLOFT [Concomitant]
     Indication: DEPRESSION
     Dosage: UNK
     Dates: start: 2010, end: 2011
  3. ZOLOFT [Concomitant]
     Indication: DEPRESSION
     Dosage: 100 MG, QD
  4. ABILIFY [Concomitant]
     Indication: DEPRESSION
     Dosage: UNK
     Dates: start: 2010, end: 2011
  5. ABILIFY [Concomitant]
     Indication: DEPRESSION
     Dosage: 3 MG, QD
  6. PROZAC [Concomitant]
     Indication: DEPRESSION
     Dosage: UNK
     Dates: start: 2010
  7. PREVIDENT [Concomitant]
     Dosage: UNK
     Dates: start: 20100907
  8. TRAZODONE [Concomitant]
     Dosage: 100 MG, PRN
     Dates: start: 20101112
  9. IBUPROFEN [Concomitant]
     Dosage: 200 MG, UNK
     Dates: start: 20101112

REACTIONS (10)
  - Cholecystectomy [None]
  - Pain [None]
  - Injury [None]
  - General physical health deterioration [None]
  - Anxiety [None]
  - Anhedonia [None]
  - Emotional distress [None]
  - Pain [None]
  - Biliary dyskinesia [None]
  - Cholecystitis chronic [None]
